FAERS Safety Report 6314130-0 (Version None)
Quarter: 2009Q3

REPORT INFORMATION
  Report Type: 
  Country: None (occurrence: None)
  Receive Date: 20090818
  Receipt Date: 20090812
  Transmission Date: 20100115
  Serious: Yes (Death, Other)
  Sender: FDA-Public Use
  Company Number: PHHY2009IT33394

PATIENT
  Sex: Female

DRUGS (3)
  1. ZOMETA [Suspect]
     Indication: BREAST CANCER
     Dosage: 4 MG, QMO
     Route: 042
     Dates: start: 20040401, end: 20070331
  2. ZOMETA [Suspect]
     Indication: METASTASES TO BREAST
  3. FASLODEX [Concomitant]
     Dosage: 250 MG/5 ML IM INJECTABLE SOLUTION FOR 3 YEARS

REACTIONS (3)
  - DEATH [None]
  - MAXILLOFACIAL OPERATION [None]
  - OSTEOMYELITIS [None]
